FAERS Safety Report 6765248-X (Version None)
Quarter: 2010Q2

REPORT INFORMATION
  Report Type: 
  Country: None (occurrence: None)
  Receive Date: 20100611
  Receipt Date: 20100420
  Transmission Date: 20101027
  Serious: Yes (Other)
  Sender: FDA-Public Use
  Company Number: US-BAYER-201017010NA

PATIENT
  Age: 18 Year
  Sex: Female
  Weight: 79 kg

DRUGS (6)
  1. YAZ [Suspect]
     Indication: DRUG USE FOR UNKNOWN INDICATION
     Route: 048
  2. YASMIN [Suspect]
     Indication: DRUG USE FOR UNKNOWN INDICATION
     Route: 048
  3. OCELLA [Suspect]
     Indication: CONTRACEPTION
     Route: 048
     Dates: start: 20000101, end: 20100101
  4. PREVACID [Concomitant]
     Route: 065
     Dates: start: 20080101, end: 20100101
  5. ADDERALL XR 10 [Concomitant]
     Route: 048
  6. TYLENOL [Concomitant]
     Indication: HEADACHE
     Route: 048

REACTIONS (1)
  - GALLBLADDER DISORDER [None]
